FAERS Safety Report 8103482-7 (Version None)
Quarter: 2012Q1

REPORT INFORMATION
  Report Type: 
  Country: None (occurrence: None)
  Receive Date: 20120201
  Receipt Date: 20120124
  Transmission Date: 20120608
  Serious: Yes (Other)
  Sender: FDA-Public Use
  Company Number: PHHY2011US65192

PATIENT
  Sex: Female
  Weight: 116.55 kg

DRUGS (1)
  1. GILENYA [Suspect]
     Indication: MULTIPLE SCLEROSIS
     Dosage: 0.5 MG, DAILY
     Route: 048
     Dates: start: 20110711, end: 20110727

REACTIONS (4)
  - HEADACHE [None]
  - DYSPNOEA [None]
  - FATIGUE [None]
  - DIZZINESS [None]
